FAERS Safety Report 7742629-9 (Version None)
Quarter: 2011Q3

REPORT INFORMATION
  Report Type: 
  Country: None (occurrence: None)
  Receive Date: 20110908
  Receipt Date: 20110908
  Transmission Date: 20111222
  Serious: Yes (Hospitalization)
  Sender: FDA-Public Use
  Company Number: None

PATIENT
  Age: 55 Year
  Sex: Female
  Weight: 102.9665 kg

DRUGS (7)
  1. DEXAMETHASONE [Concomitant]
  2. KCL SLOW RELEASE [Concomitant]
  3. LISINOPRIL [Concomitant]
  4. TRIAMTERENE [Concomitant]
  5. ERLOTINIB HYDROCHLORIDE [Suspect]
     Indication: NON-SMALL CELL LUNG CANCER
     Dosage: 150 MG QD
     Dates: start: 20110810
  6. CLONAZEPAM [Concomitant]
  7. LIPITOR [Concomitant]

REACTIONS (5)
  - VOMITING [None]
  - DEHYDRATION [None]
  - HYPOPHAGIA [None]
  - DECREASED APPETITE [None]
  - DIZZINESS POSTURAL [None]
